FAERS Safety Report 5423544-2 (Version None)
Quarter: 2007Q3

REPORT INFORMATION
  Report Type: 
  Country: None (occurrence: None)
  Receive Date: 20070821
  Receipt Date: 20070821
  Transmission Date: 20080115
  Serious: Yes (Hospitalization)
  Sender: FDA-Public Use
  Company Number: None

PATIENT
  Age: 50 Year
  Sex: Female
  Weight: 90.7194 kg

DRUGS (4)
  1. CAPECITABINE, ROCHE LABORATORIES INC. [Suspect]
     Indication: BREAST CANCER
     Dosage: 1650 MG DAILY ORAL
     Route: 048
     Dates: start: 20070711, end: 20070813
  2. CYMBALTA [Concomitant]
  3. INDAPAMIDE [Concomitant]
  4. KLOR-CON [Concomitant]

REACTIONS (6)
  - DEHYDRATION [None]
  - DIARRHOEA [None]
  - DYSPHAGIA [None]
  - MUCOSAL INFLAMMATION [None]
  - NAUSEA [None]
  - VOMITING [None]
